FAERS Safety Report 13062688 (Version 3)
Quarter: 2017Q1

REPORT INFORMATION
  Report Type: Report from Study
  Country: US (occurrence: US)
  Receive Date: 20161226
  Receipt Date: 20170123
  Transmission Date: 20170428
  Serious: Yes (Hospitalization)
  Sender: FDA-Public Use
  Company Number: PHHO2016US018716

PATIENT
  Age: 6 Year
  Sex: Male
  Weight: 25.2 kg

DRUGS (2)
  1. FARYDAK [Suspect]
     Active Substance: PANOBINOSTAT
     Dosage: UNK (TOTAL DOSE ADMINISTERED IN THIS COURSE WAS 90 MG)
     Route: 048
     Dates: start: 20161121, end: 20161209
  2. FARYDAK [Suspect]
     Active Substance: PANOBINOSTAT
     Indication: GLIOMA
     Dosage: UNK
     Route: 048
     Dates: start: 20160926

REACTIONS (3)
  - Hemiparesis [Recovered/Resolved]
  - Headache [Recovered/Resolved]
  - Lethargy [Recovered/Resolved]

NARRATIVE: CASE EVENT DATE: 20161205
